FAERS Safety Report 10177872 (Version 7)
Quarter: 2017Q1

REPORT INFORMATION
  Report Type: Report from Study
  Country: None (occurrence: CN)
  Receive Date: 20140516
  Receipt Date: 20170323
  Transmission Date: 20170428
  Serious: Yes (Hospitalization, Other)
  Sender: FDA-Public Use
  Company Number: CN-ABBVIE-14P-035-1214687-00

PATIENT
  Age: 51 Year
  Sex: Female
  Weight: 43 kg

DRUGS (9)
  1. METHOTREXATE. [Concomitant]
     Active Substance: METHOTREXATE
     Indication: CROHN^S DISEASE
     Route: 058
     Dates: start: 20131029, end: 20140320
  2. AVAILABLE ANTIDIARRHEAL CAPSULE [Concomitant]
     Indication: DIARRHOEA
     Route: 048
     Dates: start: 20140302, end: 20140305
  3. MEDROL [Concomitant]
     Active Substance: METHYLPREDNISOLONE
     Indication: CROHN^S DISEASE
     Route: 048
     Dates: start: 20140114
  4. NORFLOXACIN [Concomitant]
     Active Substance: NORFLOXACIN
     Indication: PRODUCT USED FOR UNKNOWN INDICATION
     Dates: start: 20140302, end: 20140305
  5. OFLOXACIN. [Concomitant]
     Active Substance: OFLOXACIN
     Indication: ABDOMINAL PAIN
     Route: 041
     Dates: start: 20140307, end: 20140307
  6. HUMIRA [Suspect]
     Active Substance: ADALIMUMAB
     Indication: CROHN^S DISEASE
     Route: 058
     Dates: start: 20140214, end: 20140214
  7. HUMIRA [Suspect]
     Active Substance: ADALIMUMAB
     Route: 058
     Dates: start: 20140227, end: 20140227
  8. THALIDOMIDE [Concomitant]
     Active Substance: THALIDOMIDE
     Indication: CROHN^S DISEASE
     Dosage: QN
     Route: 048
     Dates: start: 20131029, end: 20140331
  9. IRON POLYSACCHARIDE COMPLEX CAPSULES [Concomitant]
     Indication: ANAEMIA
     Route: 048
     Dates: start: 20131203, end: 20140320

REACTIONS (5)
  - Crohn^s disease [Unknown]
  - Disseminated tuberculosis [Recovered/Resolved]
  - Intestinal obstruction [Unknown]
  - Tuberculosis gastrointestinal [Not Recovered/Not Resolved]
  - Lung infection [Recovered/Resolved]

NARRATIVE: CASE EVENT DATE: 20140311
